FAERS Safety Report 5115040-7 (Version None)
Quarter: 2006Q3

REPORT INFORMATION
  Report Type: 
  Country: None (occurrence: None)
  Receive Date: 20060925
  Receipt Date: 20060925
  Transmission Date: 20061208
  Serious: Yes (Hospitalization, Other)
  Sender: FDA-Public Use
  Company Number: None

PATIENT
  Sex: Female
  Weight: 35.5 kg

DRUGS (5)
  1. REMODULIN [Suspect]
     Indication: PULMONARY HYPERTENSION
     Dosage: 150 NG/KG/MIN AT 45CC/24 HRS   CONTINUOUS  IV DRIP
     Route: 041
     Dates: start: 20040907, end: 20050722
  2. SILDENAFIL [Concomitant]
  3. DIGIXIN [Concomitant]
  4. LASIX [Concomitant]
  5. OXYGEN [Concomitant]

REACTIONS (8)
  - BACTERIA BLOOD IDENTIFIED [None]
  - BIOPSY BONE MARROW ABNORMAL [None]
  - CATHETER RELATED COMPLICATION [None]
  - LUNG NEOPLASM [None]
  - MYCOBACTERIUM FORTUITUM INFECTION [None]
  - PANCYTOPENIA [None]
  - PROPIONIBACTERIUM INFECTION [None]
  - RASH [None]
